FAERS Safety Report 9801670 (Version 2)
Quarter: 2014Q2

REPORT INFORMATION
  Report Type: Spontaneous
  Country: FR (occurrence: FR)
  Receive Date: 20140107
  Receipt Date: 20140603
  Transmission Date: 20141212
  Serious: Yes (Hospitalization)
  Sender: FDA-Public Use
  Company Number: PHHY2013FR154397

PATIENT
  Age: 81 Year
  Sex: Male

DRUGS (7)
  1. EXELON PATCH [Suspect]
     Dosage: 9.5 MG, DAILY
     Route: 062
     Dates: start: 201309, end: 20131205
  2. TICLOPIDINE [Suspect]
     Dosage: 250 MG, BID
     Route: 048
     Dates: start: 1989, end: 20131204
  3. TAMSULOSIN [Suspect]
     Dosage: 0.4 MG, QD
     Route: 048
     Dates: end: 20131205
  4. ZOLPIDEM [Suspect]
     Dosage: 10 MG, QD
     Route: 048
     Dates: end: 20131205
  5. SIMVASTATINE [Concomitant]
     Dosage: 20 MG, QD
     Route: 048
     Dates: end: 20131205
  6. TIAPRIDAL [Concomitant]
     Dosage: 0.5 DF, BID
     Route: 048
     Dates: start: 20130820, end: 20131205
  7. FORLAX [Concomitant]
     Dosage: 4000 UKN, QD

REACTIONS (3)
  - Cerebrovascular accident [Recovered/Resolved]
  - Hypertonia [Unknown]
  - Hemiparesis [Unknown]
